FAERS Safety Report 20219513 (Version 2)
Quarter: 2022Q2

REPORT INFORMATION
  Report Type: Spontaneous
  Country: JP (occurrence: JP)
  Receive Date: 20211222
  Receipt Date: 20220413
  Transmission Date: 20220721
  Serious: Yes (Hospitalization)
  Sender: FDA-Public Use
  Company Number: JP-ANIPHARMA-2021-JP-000614

PATIENT
  Age: 90 Year
  Sex: Male
  Weight: 63 kg

DRUGS (7)
  1. CASODEX [Suspect]
     Active Substance: BICALUTAMIDE
     Indication: Prostate cancer
     Dosage: 80 MG DAILY / 80 MG DAILY
     Route: 048
     Dates: start: 20210723
  2. GOSERELIN ACETATE [Suspect]
     Active Substance: GOSERELIN ACETATE
     Dosage: 10.8 MG Q3MO
     Route: 058
     Dates: start: 20210803, end: 20211026
  3. HARNAL [Concomitant]
     Active Substance: TAMSULOSIN HYDROCHLORIDE
     Dosage: .2 MG DAILY
     Route: 048
     Dates: start: 2014
  4. IMIDAFENACIN [Concomitant]
     Active Substance: IMIDAFENACIN
     Dosage: .1 MG DAILY
     Route: 048
     Dates: start: 20191203
  5. AMLODIPINE BESYLATE\IRBESARTAN [Concomitant]
     Active Substance: AMLODIPINE BESYLATE\IRBESARTAN
     Route: 065
  6. CLOPIDOGREL [Concomitant]
     Active Substance: CLOPIDOGREL BISULFATE
     Route: 065
     Dates: start: 20181108
  7. DONEPEZIL HYDROCHLORIDE [Concomitant]
     Active Substance: DONEPEZIL HYDROCHLORIDE
     Route: 065

REACTIONS (3)
  - Glycosylated haemoglobin increased [Unknown]
  - Diabetic ketoacidosis [Recovering/Resolving]
  - Off label use [Unknown]

NARRATIVE: CASE EVENT DATE: 20210801
